FAERS Safety Report 13876764 (Version 1)
Quarter: 2017Q3

REPORT INFORMATION
  Report Type: Report from Study
  Country: HU (occurrence: HU)
  Receive Date: 20170817
  Receipt Date: 20170817
  Transmission Date: 20171127
  Serious: Yes (Hospitalization)
  Sender: FDA-Public Use
  Company Number: HU-ROCHE-1978180

PATIENT
  Age: 73 Year
  Sex: Male
  Weight: 77 kg

DRUGS (13)
  1. ETOPOSIDE. [Suspect]
     Active Substance: ETOPOSIDE
     Indication: SMALL CELL LUNG CANCER EXTENSIVE STAGE
     Dosage: ON 06/JUL/2017 (AT 10:00), THE PATIENT RECEIVED MOST RECENT DOSE OF ETOPOSIDE (140 MG) PRIOR TO THE
     Route: 042
     Dates: start: 20170502
  2. TRITACE [Concomitant]
     Active Substance: RAMIPRIL
     Indication: HYPERTENSION
     Route: 048
     Dates: start: 2001
  3. PANTOPRAZOL [Concomitant]
     Active Substance: PANTOPRAZOLE SODIUM
     Indication: PROPHYLAXIS
     Route: 048
     Dates: start: 2012
  4. SP 54 [Concomitant]
     Active Substance: PENTOSAN POLYSULFATE SODIUM
     Indication: ARTERIOSCLEROSIS
     Route: 048
     Dates: start: 2002
  5. PENTOXYL [Concomitant]
     Active Substance: PENTOXIFYLLINE
     Indication: ARTERIOSCLEROSIS
     Route: 048
     Dates: start: 2002
  6. ASACTAL [Concomitant]
     Active Substance: ASPIRIN
     Indication: ARTERIOSCLEROSIS
     Route: 048
     Dates: start: 2002
  7. INSULIN (HUMULIN N) [Concomitant]
     Indication: DIABETES MELLITUS
     Route: 058
     Dates: start: 2011
  8. CARBOPLATIN. [Suspect]
     Active Substance: CARBOPLATIN
     Indication: SMALL CELL LUNG CANCER EXTENSIVE STAGE
     Dosage: ON 04/JUL/2017 (AT 12:20), THE PATIENT RECEIVED MOST RECENT DOSE OF CARBOPLATIN (261 MG) PRIOR TO TH
     Route: 042
     Dates: start: 20170502
  9. ISOPTIN [Concomitant]
     Active Substance: VERAPAMIL HYDROCHLORIDE
     Indication: HYPERTENSION
     Route: 048
     Dates: start: 2001
  10. PANGROL [Concomitant]
     Active Substance: PANCRELIPASE
     Indication: PANCREATITIS CHRONIC
     Route: 048
     Dates: start: 2011
  11. INSULIN(HUMULIN R) [Concomitant]
     Indication: DIABETES MELLITUS
     Route: 058
     Dates: start: 2011
  12. LIPIDIL [Concomitant]
     Active Substance: FENOFIBRATE
     Indication: ARTERIOSCLEROSIS
     Route: 048
     Dates: start: 2002
  13. ATEZOLIZUMAB. [Suspect]
     Active Substance: ATEZOLIZUMAB
     Indication: SMALL CELL LUNG CANCER EXTENSIVE STAGE
     Dosage: ON 25/JUL/2017 (AT 10:10), THE PATIENT RECEIVED MOST RECENT DOSE OF BLINDED ATEZOLIZUMAB PRIOR TO TH
     Route: 042
     Dates: start: 20170502

REACTIONS (1)
  - Atrioventricular block complete [Not Recovered/Not Resolved]

NARRATIVE: CASE EVENT DATE: 20170810
